FAERS Safety Report 7790427-2 (Version None)
Quarter: 2011Q3

REPORT INFORMATION
  Report Type: 
  Country: None (occurrence: None)
  Receive Date: 20110930
  Receipt Date: 20110928
  Transmission Date: 20111222
  Serious: Yes (Hospitalization)
  Sender: FDA-Public Use
  Company Number: AU-PFIZER INC-2011220918

PATIENT
  Age: 73 Year
  Sex: Male
  Weight: 83 kg

DRUGS (12)
  1. NORVASC [Concomitant]
     Dosage: 2.5 MG, 1X/DAY
  2. SPIRIVA [Concomitant]
     Dosage: UNK
  3. BETALOC [Concomitant]
     Dosage: 25 MG, 2X/DAY
  4. ASPIRIN [Concomitant]
     Dosage: 100 MG, UNK
  5. NEXIUM [Concomitant]
     Dosage: 40 MG, 1X/DAY
  6. LASIX [Concomitant]
     Dosage: 40 MG, 1X/DAY
  7. ZESTRIL [Concomitant]
     Dosage: 10 MG, UNK
  8. ZOCOR [Concomitant]
     Dosage: 40 MG, UNK
  9. VARENICLINE TARTRATE [Suspect]
     Indication: SMOKING CESSATION THERAPY
     Dosage: 1 MG, 2X/DAY
     Route: 048
     Dates: start: 20110801, end: 20110824
  10. VARENICLINE TARTRATE [Suspect]
     Dosage: 1 MG, 1X/DAY
     Dates: start: 20110825, end: 20110903
  11. SERETIDE [Concomitant]
     Dosage: 250/25 UNK
  12. BRICANYL [Concomitant]
     Dosage: 500 MG, UNK

REACTIONS (7)
  - INSOMNIA [None]
  - CONDUCTION DISORDER [None]
  - ATRIAL FIBRILLATION [None]
  - CARDIAC ARREST [None]
  - CAROTID ARTERY OCCLUSION [None]
  - ACUTE MYOCARDIAL INFARCTION [None]
  - CEREBRAL INFARCTION [None]
